FAERS Safety Report 11652969 (Version 1)
Quarter: 2015Q4

REPORT INFORMATION
  Report Type: Spontaneous
  Country: US (occurrence: None)
  Receive Date: 20151022
  Receipt Date: 20151022
  Transmission Date: 20160304
  Serious: No
  Sender: FDA-Public Use
  Company Number: None

PATIENT
  Age: 35 Year
  Sex: Female
  Weight: 83.01 kg

DRUGS (5)
  1. PLAQUENIL [Concomitant]
     Active Substance: HYDROXYCHLOROQUINE SULFATE
  2. LAMICTAL [Concomitant]
     Active Substance: LAMOTRIGINE
  3. AMPHETAMINE SALT 20 MG COREPHARMA [Suspect]
     Active Substance: AMPHETAMINE ASPARTATE\AMPHETAMINE SULFATE\DEXTROAMPHETAMINE SACCHARATE\DEXTROAMPHETAMINE SULFATE
     Indication: ATTENTION DEFICIT/HYPERACTIVITY DISORDER
     Dosage: 1/2 TO 1 PILL TWICE DAILY
     Route: 048
     Dates: start: 20151009, end: 20151016
  4. BUPROPRION [Concomitant]
     Active Substance: BUPROPION
  5. MULTIVITAMIN [Concomitant]
     Active Substance: VITAMINS

REACTIONS (7)
  - Anger [None]
  - Impaired work ability [None]
  - Drug ineffective [None]
  - Condition aggravated [None]
  - Somnolence [None]
  - Blood pressure increased [None]
  - Attention deficit/hyperactivity disorder [None]

NARRATIVE: CASE EVENT DATE: 20151009
